FAERS Safety Report 7081978-7 (Version None)
Quarter: 2010Q4

REPORT INFORMATION
  Report Type: 
  Country: None (occurrence: None)
  Receive Date: 20101103
  Receipt Date: 20101029
  Transmission Date: 20110411
  Serious: Yes (Other)
  Sender: FDA-Public Use
  Company Number: JP-PFIZER INC-2010137392

PATIENT
  Age: 61 Year
  Sex: Male

DRUGS (3)
  1. ESTRACYT [Suspect]
     Dosage: 313.4 MG, 1X/DAY
     Route: 048
     Dates: start: 20100903
  2. CALCIUM LACTATE [Concomitant]
     Dosage: 3 G, WEEKLY
     Route: 048
     Dates: start: 20101001
  3. URSO 250 [Concomitant]
     Dosage: 200 MG, 1X/DAY
     Route: 048

REACTIONS (1)
  - CALCULUS URINARY [None]
